FAERS Safety Report 4714108-4 (Version None)
Quarter: 2005Q3

REPORT INFORMATION
  Report Type: 
  Country: None (occurrence: None)
  Receive Date: 20050713
  Receipt Date: 20050713
  Transmission Date: 20060218
  Serious: Yes (Hospitalization)
  Sender: FDA-Public Use
  Company Number: None

PATIENT
  Sex: Male

DRUGS (10)
  1. PREDNISONE [Suspect]
     Indication: CHRONIC OBSTRUCTIVE PULMONARY DISEASE
     Dosage: TAPER ORAL
     Route: 048
     Dates: start: 20050310, end: 20050319
  2. ALBUTEROL [Concomitant]
  3. COMBIVENT [Concomitant]
  4. DIPHENHYDRAMINE HCL [Concomitant]
  5. FORMOTEROL [Concomitant]
  6. METRONIDAZOLE [Concomitant]
  7. OMEPRAZOLE [Concomitant]
  8. PRAZOSIN HCL [Concomitant]
  9. TRAVOPROST [Concomitant]
  10. UREA 40% [Concomitant]

REACTIONS (3)
  - FATIGUE [None]
  - POLYDIPSIA [None]
  - POLYURIA [None]
